FAERS Safety Report 4662086-9 (Version None)
Quarter: 2005Q2

REPORT INFORMATION
  Report Type: 
  Country: None (occurrence: None)
  Receive Date: 20050512
  Receipt Date: 20050429
  Transmission Date: 20051028
  Serious: Yes (Hospitalization)
  Sender: FDA-Public Use
  Company Number: 2005067759

PATIENT
  Age: 74 Year
  Sex: Female
  Weight: 65.318 kg

DRUGS (2)
  1. FLAGYL [Suspect]
     Indication: DIARRHOEA INFECTIOUS
     Dosage: ORAL
     Route: 048
     Dates: start: 20050101
  2. FLAGYL I.V. [Suspect]
     Indication: DIARRHOEA INFECTIOUS
     Dosage: INTRAVENOUS
     Route: 042
     Dates: start: 20050401

REACTIONS (7)
  - CONDITION AGGRAVATED [None]
  - DEHYDRATION [None]
  - DYSGEUSIA [None]
  - FLUID INTAKE REDUCED [None]
  - NAUSEA [None]
  - ORAL INTAKE REDUCED [None]
  - WEIGHT DECREASED [None]
